FAERS Safety Report 6980336 (Version 1)
Quarter: 2020Q3

REPORT INFORMATION
  Report Type: Report from Study
  Country: NL (occurrence: NL)
  Receive Date: 20090429
  Receipt Date: 20090429
  Transmission Date: 20201104
  Serious: Yes (Hospitalization)
  Sender: FDA-Public Use
  Company Number: NL-WYE-H08815309

PATIENT
  Age: 40 Year
  Sex: Female
  Weight: 79.1 kg

DRUGS (3)
  1. VINORELBINE [Suspect]
     Active Substance: VINORELBINE TARTRATE
     Indication: BREAST CANCER
     Dosage: 48.5 MG; FREQUENCY PROVIDED
     Route: 042
     Dates: start: 20090325, end: 20090325
  2. UNSPECIFIED INGREDIENT [Suspect]
     Active Substance: UNSPECIFIED INGREDIENT
     Indication: BREAST CANCER
     Dosage: 240MG; FREQUENCY NOT PROVIDED
     Route: 048
     Dates: start: 20090326
  3. VINORELBINE [Suspect]
     Active Substance: VINORELBINE TARTRATE
     Dosage: 48.5 MG; FREQUENCY PROVIDED
     Route: 042
     Dates: start: 20090415

REACTIONS (2)
  - Neutropenia [Recovered/Resolved]
  - Pyrexia [Recovered/Resolved]

NARRATIVE: CASE EVENT DATE: 20090402
